FAERS Safety Report 9998266 (Version 2)
Quarter: 2014Q1

REPORT INFORMATION
  Report Type: Report from Study
  Country: CL (occurrence: CL)
  Receive Date: 20140311
  Receipt Date: 20140317
  Transmission Date: 20141002
  Serious: Yes (Other)
  Sender: FDA-Public Use
  Company Number: CL-ROCHE-1358959

PATIENT
  Age: 40 Year
  Sex: Female
  Weight: 40 kg

DRUGS (5)
  1. XELODA [Suspect]
     Indication: COLON CANCER
     Dosage: 14 DAYS PER CYCLE, LAST DOSE OF CAPECITABINE TAKEN ON 23/FEB/2014
     Route: 048
     Dates: start: 20140214, end: 20140228
  2. OXALIPLATIN [Suspect]
     Indication: COLON CANCER
     Route: 042
     Dates: start: 20140214, end: 20140228
  3. LOSARTAN [Concomitant]
     Indication: HYPERTENSION
     Route: 048
     Dates: start: 20140101
  4. ASPIRIN [Concomitant]
     Indication: HYPERTENSION
     Route: 048
     Dates: start: 20140101
  5. ATORVASTATIN [Concomitant]
     Indication: HYPERCHOLESTEROLAEMIA
     Route: 048
     Dates: start: 20140101

REACTIONS (2)
  - Paralysis [Recovered/Resolved]
  - Speech disorder [Recovered/Resolved]
